FAERS Safety Report 7854514-2 (Version None)
Quarter: 2011Q4

REPORT INFORMATION
  Report Type: 
  Country: None (occurrence: None)
  Receive Date: 20111026
  Receipt Date: 20111017
  Transmission Date: 20120403
  Serious: Yes (Other)
  Sender: FDA-Public Use
  Company Number: US-ASTRAZENECA-2011SE62627

PATIENT
  Sex: Female

DRUGS (3)
  1. NEXIUM [Suspect]
     Dosage: TOTAL DAILY DOSE: 20 MG
     Route: 048
  2. GLEEVEC [Concomitant]
  3. GLEEVEC [Concomitant]

REACTIONS (2)
  - LEUKAEMIA [None]
  - GASTRIC DISORDER [None]
